FAERS Safety Report 7757640-1 (Version None)
Quarter: 2011Q3

REPORT INFORMATION
  Report Type: 
  Country: None (occurrence: None)
  Receive Date: 20110916
  Receipt Date: 20110902
  Transmission Date: 20111222
  Serious: Yes (Other)
  Sender: FDA-Public Use
  Company Number: PHHY2011CA78777

PATIENT
  Sex: Female

DRUGS (6)
  1. LYRICA [Concomitant]
  2. VITAMIN D [Concomitant]
  3. COPAXONE [Concomitant]
     Indication: MULTIPLE SCLEROSIS
  4. DIOVAN [Suspect]
  5. AMANTADINE HCL [Concomitant]
  6. CALCIUM CARBONATE [Concomitant]

REACTIONS (2)
  - ULCERATIVE KERATITIS [None]
  - EYE PAIN [None]
